FAERS Safety Report 9645311 (Version 1)
Quarter: 2013Q4

REPORT INFORMATION
  Report Type: Spontaneous
  Country: US (occurrence: None)
  Receive Date: 20131023
  Receipt Date: 20131023
  Transmission Date: 20140711
  Serious: Yes (Other)
  Sender: FDA-Public Use
  Company Number: SYM-2013-11729

PATIENT
  Age: 56 Year
  Sex: Female

DRUGS (3)
  1. MIGRANAL [Suspect]
     Indication: MIGRAINE
     Dosage: 1 DOSAGE FORMS, NASAL
     Dates: start: 20131004, end: 20131004
  2. DIAZEPAM (DIAZEPAM) [Concomitant]
  3. TEMAZEPAM (TEMAZEPAM) [Concomitant]

REACTIONS (5)
  - Altered visual depth perception [None]
  - Visual impairment [None]
  - Confusional state [None]
  - Urinary tract infection [None]
  - Dehydration [None]
